FAERS Safety Report 23630782 (Version 1)
Quarter: 2024Q1

REPORT INFORMATION
  Report Type: Spontaneous
  Country: US (occurrence: US)
  Receive Date: 20240314
  Receipt Date: 20240314
  Transmission Date: 20240410
  Serious: No
  Sender: FDA-Public Use
  Company Number: US-ABBVIE-5670335

PATIENT
  Age: 34 Year
  Sex: Female
  Weight: 57 kg

DRUGS (9)
  1. BOTOX COSMETIC [Suspect]
     Active Substance: ONABOTULINUMTOXINA
     Indication: Skin wrinkling
     Dosage: TIME INTERVAL: AS NECESSARY: FREQUENCY TEXT: SPORADIC?20 UNIT
     Route: 030
     Dates: start: 20240219, end: 20240219
  2. BOTOX COSMETIC [Suspect]
     Active Substance: ONABOTULINUMTOXINA
     Indication: Skin wrinkling
     Dosage: TIME INTERVAL: AS NECESSARY: FREQUENCY TEXT: SPORADIC?20 UNIT
     Route: 030
     Dates: start: 2020, end: 20240206
  3. BOTOX COSMETIC [Suspect]
     Active Substance: ONABOTULINUMTOXINA
     Indication: Skin wrinkling
     Dosage: TIME INTERVAL: AS NECESSARY: FREQUENCY TEXT: SPORADIC?12UNIT
     Route: 030
     Dates: start: 2020, end: 20240206
  4. BOTOX COSMETIC [Suspect]
     Active Substance: ONABOTULINUMTOXINA
     Indication: Skin wrinkling
     Dosage: TIME INTERVAL: AS NECESSARY: FREQUENCY TEXT: SPORADIC ?9 UNIT
     Route: 030
     Dates: start: 2020, end: 20240206
  5. BOTOX COSMETIC [Suspect]
     Active Substance: ONABOTULINUMTOXINA
     Indication: Skin wrinkling
     Dosage: TIME INTERVAL: AS NECESSARY: FREQUENCY TEXT: SPORADIC ?4 UNIT
     Route: 030
     Dates: start: 2020, end: 20240206
  6. BOTOX COSMETIC [Suspect]
     Active Substance: ONABOTULINUMTOXINA
     Indication: Skin wrinkling
     Dosage: TIME INTERVAL: AS NECESSARY: FREQUENCY TEXT: SPORADIC?12 UNIT
     Route: 030
     Dates: start: 20240219, end: 20240219
  7. BOTOX COSMETIC [Suspect]
     Active Substance: ONABOTULINUMTOXINA
     Indication: Skin wrinkling
     Dosage: TIME INTERVAL: AS NECESSARY: FREQUENCY TEXT: SPORADIC?9 UNIT
     Route: 030
     Dates: start: 20240219, end: 20240219
  8. BOTOX COSMETIC [Suspect]
     Active Substance: ONABOTULINUMTOXINA
     Indication: Skin wrinkling
     Dosage: TIME INTERVAL: AS NECESSARY: FREQUENCY TEXT: SPORADIC?4 UNIT
     Route: 030
     Dates: start: 20240219, end: 20240219
  9. TYLENOL [Concomitant]
     Active Substance: ACETAMINOPHEN
     Indication: Headache

REACTIONS (13)
  - Eyelid ptosis [Recovering/Resolving]
  - Grip strength decreased [Recovering/Resolving]
  - Joint range of motion decreased [Recovering/Resolving]
  - Dysphagia [Recovering/Resolving]
  - Headache [Recovered/Resolved]
  - Tunnel vision [Recovering/Resolving]
  - Mastication disorder [Not Recovered/Not Resolved]
  - Asthenia [Recovering/Resolving]
  - Diplopia [Recovering/Resolving]
  - Off label use [Not Recovered/Not Resolved]
  - Fatigue [Recovering/Resolving]
  - Muscular weakness [Recovering/Resolving]
  - Vision blurred [Recovering/Resolving]

NARRATIVE: CASE EVENT DATE: 20240201
